FAERS Safety Report 10300462 (Version 2)
Quarter: 2014Q3

REPORT INFORMATION
  Report Type: Spontaneous
  Country: RU (occurrence: RU)
  Receive Date: 20140713
  Receipt Date: 20140713
  Transmission Date: 20150326
  Serious: Yes (Hospitalization, Other)
  Sender: FDA-Public Use
  Company Number: RU-AMGEN-RUSSP2014049672

PATIENT
  Age: 50 Year
  Sex: Female

DRUGS (1)
  1. NPLATE [Suspect]
     Active Substance: ROMIPLOSTIM
     Indication: THROMBOCYTOPENIA
     Dosage: UNK
     Route: 065
     Dates: start: 201403

REACTIONS (8)
  - Retinopathy hypertensive [Unknown]
  - Nausea [Unknown]
  - Acute disseminated encephalomyelitis [Unknown]
  - Cerebrovascular accident [Unknown]
  - Platelet count abnormal [Unknown]
  - Drug intolerance [Unknown]
  - Vertebrobasilar insufficiency [Unknown]
  - Myelofibrosis [Unknown]

NARRATIVE: CASE EVENT DATE: 201403
